FAERS Safety Report 5690356-4 (Version None)
Quarter: 2008Q2

REPORT INFORMATION
  Report Type: 
  Country: None (occurrence: None)
  Receive Date: 20080401
  Receipt Date: 20080321
  Transmission Date: 20081010
  Serious: Yes (Other)
  Sender: FDA-Public Use
  Company Number: US-WYE-H02864908

PATIENT
  Sex: Female

DRUGS (4)
  1. EFFEXOR [Suspect]
     Dosage: UNKNOWN
     Dates: start: 20071201
  2. MORPHINE [Suspect]
     Indication: PAIN
     Dosage: UNKNOWN
  3. IBUPROFEN [Concomitant]
     Indication: INFLUENZA LIKE ILLNESS
     Dosage: UNKNOWN
  4. REBIF [Suspect]
     Indication: MULTIPLE SCLEROSIS
     Route: 058
     Dates: start: 20070311

REACTIONS (7)
  - ABNORMAL BEHAVIOUR [None]
  - ANXIETY [None]
  - HALLUCINATION [None]
  - LOSS OF CONSCIOUSNESS [None]
  - NERVOUS SYSTEM DISORDER [None]
  - PICA [None]
  - SUDDEN ONSET OF SLEEP [None]
